FAERS Safety Report 25206047 (Version 1)
Quarter: 2025Q2

REPORT INFORMATION
  Report Type: Spontaneous
  Country: US (occurrence: GB)
  Receive Date: 20250417
  Receipt Date: 20250417
  Transmission Date: 20250717
  Serious: Yes (Hospitalization)
  Sender: ROCHE
  Company Number: US-ROCHE-10000257781

PATIENT
  Age: 77 Year
  Sex: Female
  Weight: 82.1 kg

DRUGS (1)
  1. BONIVA [Suspect]
     Active Substance: IBANDRONATE SODIUM
     Indication: Osteoporosis
     Dosage: 1X/MONTH
     Route: 048
     Dates: start: 20250324, end: 20250324

REACTIONS (7)
  - Nasopharyngitis [Unknown]
  - Pyrexia [Recovered/Resolved]
  - Arthralgia [Unknown]
  - Erythema [Unknown]
  - Swelling [Unknown]
  - Bone pain [Unknown]
  - Ill-defined disorder [Unknown]
